FAERS Safety Report 9440916 (Version 1)
Quarter: 2013Q3

REPORT INFORMATION
  Report Type: Spontaneous
  Country: US (occurrence: None)
  Receive Date: 20130801
  Receipt Date: 20130801
  Transmission Date: 20140515
  Serious: Yes (Other)
  Sender: FDA-Public Use
  Company Number: TIR-02416

PATIENT
  Age: 56 Year
  Sex: Female
  Weight: 112.04 kg

DRUGS (2)
  1. TIROSINT [Suspect]
     Indication: HYPOTHYROIDISM
     Dosage: ONE  INCREASED TO 2 CAPSULES DAILY
     Route: 048
     Dates: start: 201304
  2. TIROSINT [Concomitant]
     Indication: HYPOTHYROIDISM
     Dosage: ONE  INCREASED TO 2 CAPSULES DAILY
     Route: 048
     Dates: start: 201306

REACTIONS (11)
  - Gait disturbance [None]
  - Anger [None]
  - Anxiety [None]
  - Headache [None]
  - Temperature intolerance [None]
  - Activities of daily living impaired [None]
  - Balance disorder [None]
  - Fall [None]
  - Hyperhidrosis [None]
  - Visual impairment [None]
  - Gait disturbance [None]
